FAERS Safety Report 23269281 (Version 3)
Quarter: 2024Q1

REPORT INFORMATION
  Report Type: Spontaneous
  Country: DE (occurrence: DE)
  Receive Date: 20231207
  Receipt Date: 20240307
  Transmission Date: 20240410
  Serious: Yes (Congenital Anomaly, Other)
  Sender: FDA-Public Use
  Company Number: None

PATIENT
  Sex: Female

DRUGS (8)
  1. TACROLIMUS [Suspect]
     Active Substance: TACROLIMUS
     Indication: Product used for unknown indication
     Route: 065
  2. AZATHIOPRINE [Suspect]
     Active Substance: AZATHIOPRINE
     Indication: Product used for unknown indication
     Route: 065
  3. PREDNISOLONE [Suspect]
     Active Substance: PREDNISOLONE
     Indication: Renal failure
     Route: 064
  4. PREDNISOLONE [Suspect]
     Active Substance: PREDNISOLONE
     Indication: Maternal exposure timing unspecified
     Route: 064
  5. TACROLIMUS [Suspect]
     Active Substance: TACROLIMUS
     Indication: Maternal exposure timing unspecified
     Route: 064
  6. AZATHIOPRINE [Suspect]
     Active Substance: AZATHIOPRINE
     Indication: Maternal exposure timing unspecified
     Route: 064
  7. AZATHIOPRINE [Suspect]
     Active Substance: AZATHIOPRINE
     Indication: Renal failure
     Route: 064
  8. TACROLIMUS [Suspect]
     Active Substance: TACROLIMUS
     Indication: Renal failure
     Route: 064

REACTIONS (6)
  - Lymphopenia [Recovering/Resolving]
  - Blood immunoglobulin M decreased [Unknown]
  - Foetal exposure during pregnancy [Unknown]
  - Blood immunoglobulin A decreased [Unknown]
  - Maternal exposure during pregnancy [Unknown]
  - Combined immunodeficiency [Unknown]
